FAERS Safety Report 20064956 (Version 2)
Quarter: 2021Q4

REPORT INFORMATION
  Report Type: Spontaneous
  Country: JP (occurrence: JP)
  Receive Date: 20211113
  Receipt Date: 20211124
  Transmission Date: 20220303
  Serious: Yes (Death, Life-Threatening, Hospitalization, Other)
  Sender: FDA-Public Use
  Company Number: JP-CHUGAI-2021025718

PATIENT
  Sex: Female
  Weight: 57.9 kg

DRUGS (16)
  1. ACTEMRA [Suspect]
     Active Substance: TOCILIZUMAB
     Indication: Takayasu^s arteritis
     Route: 041
  2. PREDNISOLONE [Suspect]
     Active Substance: PREDNISOLONE
     Indication: Takayasu^s arteritis
     Route: 065
  3. PREDNISOLONE [Suspect]
     Active Substance: PREDNISOLONE
     Route: 065
  4. PREDNISOLONE [Suspect]
     Active Substance: PREDNISOLONE
     Route: 065
  5. ASPIRIN [Concomitant]
     Active Substance: ASPIRIN
  6. LANSOPRAZOLE [Concomitant]
     Active Substance: LANSOPRAZOLE
  7. ALFACALCIDOL [Concomitant]
     Active Substance: ALFACALCIDOL
  8. VALSARTAN [Concomitant]
     Active Substance: VALSARTAN
  9. ENALAPRIL MALEATE [Concomitant]
     Active Substance: ENALAPRIL MALEATE
  10. FUROSEMIDE [Concomitant]
     Active Substance: FUROSEMIDE
  11. SPIRONOLACTONE [Concomitant]
     Active Substance: SPIRONOLACTONE
  12. WARFARIN POTASSIUM [Concomitant]
     Active Substance: WARFARIN POTASSIUM
  13. ALENDRONATE [Concomitant]
     Active Substance: ALENDRONATE SODIUM
  14. LOXOPROFEN SODIUM [Concomitant]
     Active Substance: LOXOPROFEN SODIUM
  15. HERBALS [Concomitant]
     Active Substance: HERBALS
  16. FERROUS SULFATE [Concomitant]
     Active Substance: FERROUS SULFATE

REACTIONS (11)
  - Cardiac failure congestive [Fatal]
  - Prothrombin time ratio increased [Unknown]
  - Pyelonephritis acute [Recovering/Resolving]
  - Septic shock [Recovered/Resolved]
  - Vascular device infection [Unknown]
  - Pneumonia [Unknown]
  - Cardiac failure [Recovering/Resolving]
  - Mitral valve incompetence [Unknown]
  - Endocarditis [Fatal]
  - Sepsis [Fatal]
  - Off label use [Unknown]

NARRATIVE: CASE EVENT DATE: 20200101
